FAERS Safety Report 21792970 (Version 1)
Quarter: 2022Q4

REPORT INFORMATION
  Report Type: Spontaneous
  Country: CN (occurrence: CN)
  Receive Date: 20221229
  Receipt Date: 20221229
  Transmission Date: 20230113
  Serious: No
  Sender: FDA-Public Use
  Company Number: CN-ALKEM LABORATORIES LIMITED-CN-ALKEM-2022-11725

PATIENT
  Age: 2 Month
  Sex: Female

DRUGS (4)
  1. SIROLIMUS [Suspect]
     Active Substance: SIROLIMUS
     Indication: Sympathetic posterior cervical syndrome
     Dosage: 0.8 MILLIGRAM/SQ. METER, BODY SURFACE AREA, BID (TWICE DAILY)
     Route: 048
  2. SIROLIMUS [Suspect]
     Active Substance: SIROLIMUS
     Indication: Mouth ulceration
  3. SIROLIMUS [Suspect]
     Active Substance: SIROLIMUS
     Indication: Swollen tongue
  4. SIROLIMUS [Suspect]
     Active Substance: SIROLIMUS
     Indication: Oropharyngeal discomfort

REACTIONS (3)
  - Oral pain [Unknown]
  - Eczema [Unknown]
  - Toxicity to various agents [Unknown]
